FAERS Safety Report 25968906 (Version 1)
Quarter: 2025Q4

REPORT INFORMATION
  Report Type: Spontaneous
  Country: US (occurrence: US)
  Receive Date: 20251028
  Receipt Date: 20251028
  Transmission Date: 20260118
  Serious: Yes (Other)
  Sender: ROCHE
  Company Number: US-ROCHE-10000414063

PATIENT
  Sex: Female

DRUGS (1)
  1. AVASTIN [Suspect]
     Active Substance: BEVACIZUMAB
     Indication: Product used for unknown indication
     Route: 050
     Dates: start: 20250820

REACTIONS (3)
  - Endophthalmitis [Recovering/Resolving]
  - Recalled product administered [Unknown]
  - Off label use [Unknown]

NARRATIVE: CASE EVENT DATE: 20250820
